FAERS Safety Report 4722140-X (Version None)
Quarter: 2005Q3

REPORT INFORMATION
  Report Type: 
  Country: None (occurrence: None)
  Receive Date: 20050722
  Receipt Date: 20040805
  Transmission Date: 20060218
  Serious: Yes (Hospitalization)
  Sender: FDA-Public Use
  Company Number: US-GLAXOSMITHKLINE-A0521086A

PATIENT
  Age: 64 Year
  Sex: Male
  Weight: 154.5 kg

DRUGS (8)
  1. AVANDIA [Suspect]
     Dosage: 4MG PER DAY
     Route: 048
     Dates: start: 20010606, end: 20030326
  2. GLUCOPHAGE [Suspect]
     Route: 048
     Dates: end: 20030326
  3. GEMFIBROZIL [Concomitant]
     Route: 048
     Dates: start: 20020725
  4. LIPITOR [Concomitant]
     Route: 048
  5. DIOVAN [Concomitant]
     Route: 048
  6. GLIPIZIDE [Concomitant]
     Route: 048
  7. TOPROL-XL [Concomitant]
     Route: 048
  8. NITROGLYCERIN [Concomitant]
     Route: 048

REACTIONS (1)
  - CARDIAC FAILURE CONGESTIVE [None]
